FAERS Safety Report 8555584-9 (Version None)
Quarter: 2012Q3

REPORT INFORMATION
  Report Type: 
  Country: None (occurrence: None)
  Receive Date: 20120731
  Receipt Date: 20110823
  Transmission Date: 20120928
  Serious: Yes (Other)
  Sender: FDA-Public Use
  Company Number: US-ASTRAZENECA-2009SE19454

PATIENT
  Age: 10 Year
  Sex: Male

DRUGS (2)
  1. SEROQUEL [Suspect]
     Dosage: 200 TO 800 MG
     Route: 048
     Dates: start: 20070407
  2. TRILEPTAL [Concomitant]
     Dosage: 300 TO 1200 MG
     Route: 048
     Dates: start: 20061229

REACTIONS (6)
  - DIABETIC KETOACIDOSIS [None]
  - DIABETIC COMA [None]
  - DIABETES MELLITUS [None]
  - INSULIN RESISTANCE [None]
  - PANCREATITIS [None]
  - HYPERGLYCAEMIA [None]
